FAERS Safety Report 23132705 (Version 1)
Quarter: 2023Q4

REPORT INFORMATION
  Report Type: Spontaneous
  Country: US (occurrence: US)
  Receive Date: 20231101
  Receipt Date: 20231101
  Transmission Date: 20240109
  Serious: Yes (Other)
  Sender: FDA-Public Use
  Company Number: US-UROGEN PHARMA LTD.-2023-UGN-000072

PATIENT

DRUGS (1)
  1. JELMYTO [Suspect]
     Active Substance: MITOMYCIN
     Indication: Transitional cell cancer of the renal pelvis and ureter
     Dosage: UNK, ONCE A WEEK (INSTILLATION)
     Route: 065
     Dates: start: 20230828, end: 20230828

REACTIONS (1)
  - Pelvi-ureteric obstruction [Unknown]

NARRATIVE: CASE EVENT DATE: 20230101
